FAERS Safety Report 8920937 (Version 2)
Quarter: 2012Q4

REPORT INFORMATION
  Report Type: 
  Country: DE (occurrence: DE)
  Receive Date: 20121121
  Receipt Date: 20121127
  Transmission Date: 20130627
  Serious: Yes (Other)
  Sender: FDA-Public Use
  Company Number: DE-GLAXOSMITHKLINE-D0077857A

PATIENT
  Age: 23 Year
  Sex: Female

DRUGS (1)
  1. LAMICTAL [Suspect]
     Indication: EPILEPSY
     Dosage: 200MG Twice per day
     Route: 048

REACTIONS (3)
  - Convulsion [Recovered/Resolved]
  - Vomiting [Recovered/Resolved]
  - Drug dose omission [Recovered/Resolved]
